FAERS Safety Report 7051380-2 (Version None)
Quarter: 2010Q4

REPORT INFORMATION
  Report Type: 
  Country: None (occurrence: None)
  Receive Date: 20101018
  Receipt Date: 20101018
  Transmission Date: 20110411
  Serious: Yes (Other)
  Sender: FDA-Public Use
  Company Number: None

PATIENT
  Age: 63 Year
  Sex: Female

DRUGS (2)
  1. RECLAST [Suspect]
     Indication: OSTEOPOROSIS
     Dosage: 5 MG RECLAST X1 IV 2009; 5 MG RECLAST X1 IV 2010
     Dates: start: 20090101
  2. RECLAST [Suspect]
     Indication: OSTEOPOROSIS
     Dosage: 5 MG RECLAST X1 IV 2009; 5 MG RECLAST X1 IV 2010
     Dates: start: 20100101

REACTIONS (4)
  - ARTHRALGIA [None]
  - MUSCULOSKELETAL PAIN [None]
  - PAIN IN EXTREMITY [None]
  - PELVIC PAIN [None]
